FAERS Safety Report 11825653 (Version 2)
Quarter: 2017Q1

REPORT INFORMATION
  Report Type: Spontaneous
  Country: US (occurrence: US)
  Receive Date: 20151211
  Receipt Date: 20170314
  Transmission Date: 20170428
  Serious: No
  Sender: FDA-Public Use
  Company Number: US-JNJFOC-20150721047

PATIENT
  Age: 84 Year
  Sex: Female

DRUGS (19)
  1. IMBRUVICA [Suspect]
     Active Substance: IBRUTINIB
     Indication: CHRONIC LYMPHOCYTIC LEUKAEMIA
     Route: 048
     Dates: start: 20151118
  2. LACTULOSE. [Concomitant]
     Active Substance: LACTULOSE
  3. KLONOPIN [Concomitant]
     Active Substance: CLONAZEPAM
  4. PREDNISONE. [Concomitant]
     Active Substance: PREDNISONE
  5. ALPHAGAN P [Concomitant]
     Active Substance: BRIMONIDINE TARTRATE
  6. LASIX [Concomitant]
     Active Substance: FUROSEMIDE
  7. MACROBID [Concomitant]
     Active Substance: NITROFURANTOIN\NITROFURANTOIN MONOHYDRATE
  8. INDERAL [Concomitant]
     Active Substance: PROPRANOLOL HYDROCHLORIDE
  9. ESTRADIOL. [Concomitant]
     Active Substance: ESTRADIOL
  10. ZOFRAN [Concomitant]
     Active Substance: ONDANSETRON HYDROCHLORIDE
  11. AZITHROMYCIN ANHYDROUS. [Concomitant]
     Active Substance: AZITHROMYCIN ANHYDROUS
  12. COMPAZINE [Concomitant]
     Active Substance: PROCHLORPERAZINE MALEATE
  13. LAMICTAL [Concomitant]
     Active Substance: LAMOTRIGINE
  14. ADDERALL [Concomitant]
     Active Substance: AMPHETAMINE ASPARTATE\AMPHETAMINE SULFATE\DEXTROAMPHETAMINE SACCHARATE\DEXTROAMPHETAMINE SULFATE
  15. IMBRUVICA [Suspect]
     Active Substance: IBRUTINIB
     Indication: CHRONIC LYMPHOCYTIC LEUKAEMIA
     Route: 048
     Dates: start: 20140801
  16. CELEXA [Concomitant]
     Active Substance: CITALOPRAM HYDROBROMIDE
  17. INFLUENZA VACCINE [Suspect]
     Active Substance: INFLUENZA VIRUS VACCINE
     Indication: ANTIVIRAL PROPHYLAXIS
     Route: 065
  18. MIRALAX [Concomitant]
     Active Substance: POLYETHYLENE GLYCOL 3350
  19. LATANOPROST. [Concomitant]
     Active Substance: LATANOPROST

REACTIONS (13)
  - Contusion [Unknown]
  - Muscle spasms [Unknown]
  - Chills [Recovered/Resolved]
  - Hypoaesthesia [Unknown]
  - Pyrexia [Recovered/Resolved]
  - Peripheral coldness [Unknown]
  - Incorrect dose administered [Not Recovered/Not Resolved]
  - Tendonitis [Unknown]
  - Off label use [Not Recovered/Not Resolved]
  - Hair disorder [Unknown]
  - Vomiting [Recovered/Resolved]
  - Onychoclasis [Unknown]
  - Pain in extremity [Unknown]

NARRATIVE: CASE EVENT DATE: 20140801
